FAERS Safety Report 7677268-1 (Version None)
Quarter: 2011Q3

REPORT INFORMATION
  Report Type: 
  Country: None (occurrence: None)
  Receive Date: 20110811
  Receipt Date: 20110811
  Transmission Date: 20111222
  Serious: Yes (Hospitalization, Disabling, Other)
  Sender: FDA-Public Use
  Company Number: DE-PFIZER INC-2011116947

PATIENT
  Age: 60 Year
  Sex: Male
  Weight: 89 kg

DRUGS (3)
  1. ATORVASTATIN CALCIUM [Suspect]
     Indication: HYPERLIPIDAEMIA
     Dosage: 40 MG, 1X/DAY
     Dates: start: 20060101
  2. HYDROCHLOROTHIAZIDE [Concomitant]
     Dosage: 12.5 MG, 1X/DAY
  3. DIOVAN [Concomitant]
     Dosage: 40 MG, 1X/DAY

REACTIONS (5)
  - DIARRHOEA [None]
  - AMAUROSIS FUGAX [None]
  - AMAUROSIS [None]
  - HYPERTENSION [None]
  - ARTERIAL DISORDER [None]
